FAERS Safety Report 10619926 (Version 2)
Quarter: 2014Q4

REPORT INFORMATION
  Report Type: Spontaneous
  Country: BD (occurrence: BD)
  Receive Date: 20141202
  Receipt Date: 20141230
  Transmission Date: 20150529
  Serious: Yes (Death)
  Sender: FDA-Public Use
  Company Number: PHHY2014BD157252

PATIENT

DRUGS (3)
  1. SYNDOPA [Concomitant]
     Indication: PARKINSONISM
     Dosage: 1 DF, TID (IN THE MORNING, IN THE AFTERNOON AND AT NIGHT)
     Route: 065
  2. EXELON [Suspect]
     Active Substance: RIVASTIGMINE TARTRATE
     Indication: DEMENTIA
     Dosage: 1 DF (1 CAPSULE), BID (IN THE MORNING AND AT NIGHT)
     Route: 048
     Dates: start: 20130625, end: 20140622
  3. THYROX [Concomitant]
     Indication: HYPOTHYROIDISM
     Dosage: 1 DF, QD (IN THE MORNING)
     Route: 065

REACTIONS (1)
  - Death [Fatal]

NARRATIVE: CASE EVENT DATE: 20141124
